FAERS Safety Report 6520713-5 (Version None)
Quarter: 2009Q4

REPORT INFORMATION
  Report Type: 
  Country: None (occurrence: None)
  Receive Date: 20091229
  Receipt Date: 20091224
  Transmission Date: 20100525
  Serious: Yes (Death, Hospitalization, Other)
  Sender: FDA-Public Use
  Company Number: JP-ABBOTT-09P-087-0616192-00

PATIENT
  Age: 61 Year
  Sex: Female
  Weight: 39.8 kg

DRUGS (18)
  1. KALETRA [Suspect]
     Indication: HIV INFECTION
     Dosage: 4 TABLETS DAILY
     Route: 048
     Dates: start: 20080326, end: 20080331
  2. KLARICID [Suspect]
     Indication: MYCOBACTERIUM AVIUM COMPLEX INFECTION
     Route: 048
     Dates: start: 20080219, end: 20080401
  3. EPIVIR [Suspect]
     Indication: HIV INFECTION
     Dosage: 300 MG DAILY
     Route: 048
     Dates: start: 20080326, end: 20080331
  4. ZERIT [Suspect]
     Indication: HIV INFECTION
     Dosage: 60 MG DAILY
     Route: 048
     Dates: start: 20080326, end: 20080331
  5. VALGANCICLOVIR HCL [Suspect]
     Indication: CYTOMEGALOVIRUS ENTEROCOLITIS
     Route: 048
     Dates: start: 20080227, end: 20080329
  6. LEVOFLOXACIN [Suspect]
     Indication: MYCOBACTERIUM AVIUM COMPLEX INFECTION
     Dates: start: 20080219, end: 20080330
  7. ETHAMBUTOL HYDROCHLORIDE [Suspect]
     Indication: MYCOBACTERIUM AVIUM COMPLEX INFECTION
     Dates: start: 20080218, end: 20080409
  8. BAKTAR [Suspect]
     Indication: ANTIFUNGAL PROPHYLAXIS
     Dosage: 1000 MG DAILY
     Dates: start: 20080201, end: 20080312
  9. PREDNISOLONE [Suspect]
     Indication: SYSTEMIC LUPUS ERYTHEMATOSUS
     Dates: start: 20080125, end: 20080212
  10. PREDNISOLONE [Suspect]
     Dates: start: 20080213, end: 20080222
  11. PREDNISOLONE [Suspect]
     Dates: start: 20080223, end: 20080302
  12. PREDNISOLONE [Suspect]
     Dates: start: 20080303, end: 20080309
  13. PREDNISOLONE [Suspect]
     Dates: start: 20080310, end: 20080323
  14. PREDNISOLONE [Suspect]
     Dates: start: 20080324, end: 20080326
  15. PREDNISOLONE [Suspect]
     Dates: start: 20080327, end: 20080524
  16. SULFADIAZINE [Suspect]
     Indication: CEREBRAL TOXOPLASMOSIS
     Dates: start: 20080312, end: 20080408
  17. DARAPRIM [Suspect]
     Indication: CEREBRAL TOXOPLASMOSIS
     Dates: start: 20080312, end: 20080408
  18. CALCIUM FOLINATE [Suspect]
     Indication: CEREBRAL TOXOPLASMOSIS
     Dates: start: 20080312, end: 20080408

REACTIONS (5)
  - ANAEMIA [None]
  - BRAIN OEDEMA [None]
  - CENTRAL NERVOUS SYSTEM LYMPHOMA [None]
  - DEPRESSED LEVEL OF CONSCIOUSNESS [None]
  - PLATELET COUNT DECREASED [None]
